FAERS Safety Report 10553404 (Version 3)
Quarter: 2014Q4

REPORT INFORMATION
  Report Type: Report from Study
  Country: US (occurrence: US)
  Receive Date: 20141030
  Receipt Date: 20141114
  Transmission Date: 20150529
  Serious: Yes (Hospitalization, Other)
  Sender: FDA-Public Use
  Company Number: US-BRISTOL-MYERS SQUIBB COMPANY-21436373

PATIENT
  Age: 74 Year
  Sex: Male

DRUGS (3)
  1. VIAGRA [Concomitant]
     Active Substance: SILDENAFIL CITRATE
  2. SPRYCEL [Suspect]
     Active Substance: DASATINIB
     Indication: CHRONIC MYELOID LEUKAEMIA
     Route: 048
     Dates: start: 20090319, end: 20140728
  3. LASIX [Concomitant]
     Active Substance: FUROSEMIDE

REACTIONS (5)
  - Pericardial effusion [Recovering/Resolving]
  - Hydrocele [Unknown]
  - Squamous cell carcinoma [Unknown]
  - Pleural effusion [Recovered/Resolved]
  - Fluid retention [Recovering/Resolving]

NARRATIVE: CASE EVENT DATE: 20140413
